FAERS Safety Report 5126172-1 (Version None)
Quarter: 2006Q3

REPORT INFORMATION
  Report Type: 
  Country: None (occurrence: None)
  Receive Date: 20060823
  Receipt Date: 20051028
  Transmission Date: 20061208
  Serious: Yes (Other)
  Sender: FDA-Public Use
  Company Number: 2005148857

PATIENT
  Age: 57 Year
  Sex: Male

DRUGS (1)
  1. NORVASC [Suspect]
     Indication: ILL-DEFINED DISORDER
     Dosage: UNK (UNKNOWN), UNKNOWN

REACTIONS (2)
  - CHEST PAIN [None]
  - DYSPNOEA [None]
